FAERS Safety Report 7928906-7 (Version None)
Quarter: 2011Q4

REPORT INFORMATION
  Report Type: 
  Country: None (occurrence: None)
  Receive Date: 20111118
  Receipt Date: 20111104
  Transmission Date: 20120403
  Serious: Yes (Other)
  Sender: FDA-Public Use
  Company Number: BR-WATSON-2011-18429

PATIENT
  Age: 52 Year
  Sex: Male

DRUGS (6)
  1. IMMUNE GLOBULIN (HUMAN) [Suspect]
     Indication: IMMUNOSUPPRESSION
     Dosage: 20 MG/KG, X 4 DAYS
  2. AZATHIOPRINE [Suspect]
     Indication: IMMUNOSUPPRESSION
     Dosage: 200 MG, DAILY
     Route: 065
  3. METHYLPREDNISOLONE [Suspect]
     Indication: PRODUCT USED FOR UNKNOWN INDICATION
     Dosage: 8 MG, DAILY
  4. CYCLOSPORINE [Suspect]
     Indication: IMMUNOSUPPRESSION
     Dosage: 75 MG, BID
  5. CYCLOPHOSPHAMIDE [Suspect]
     Indication: IMMUNOSUPPRESSION
     Dosage: UNKNOWN
     Route: 065
  6. PREDNISONE [Suspect]
     Indication: IMMUNOSUPPRESSION
     Dosage: UNKNOWN
     Route: 065

REACTIONS (1)
  - CHRONIC MYELOID LEUKAEMIA [None]
